FAERS Safety Report 4746378-0 (Version None)
Quarter: 2005Q3

REPORT INFORMATION
  Report Type: 
  Country: None (occurrence: None)
  Receive Date: 20050816
  Receipt Date: 20050816
  Transmission Date: 20060218
  Serious: Yes (Hospitalization)
  Sender: FDA-Public Use
  Company Number: None

PATIENT
  Age: 73 Year
  Sex: Female
  Weight: 67.9 kg

DRUGS (11)
  1. LIPITOR [Suspect]
     Indication: HYPERLIPIDAEMIA
     Dosage: 20 MG DAILY ORAL
     Route: 048
     Dates: start: 20050525, end: 20050606
  2. ADVAIR DISCKUS [Concomitant]
  3. EVISTA [Concomitant]
  4. GLUCOSAMINE BID ACCOLATE [Concomitant]
  5. ZYRTEC [Concomitant]
  6. ZESTRIL [Concomitant]
  7. ELAVIL [Concomitant]
  8. CACLIUM [Concomitant]
  9. TORNALATE NEBS [Concomitant]
  10. ALBUTEROL [Concomitant]
  11. CENTRUM MVI [Concomitant]

REACTIONS (7)
  - DIFFICULTY IN WALKING [None]
  - HYPERSENSITIVITY [None]
  - MONONEUROPATHY [None]
  - MYALGIA [None]
  - PAIN IN EXTREMITY [None]
  - PARAESTHESIA [None]
  - RASH [None]
